FAERS Safety Report 17734406 (Version 3)
Quarter: 2020Q2

REPORT INFORMATION
  Report Type: Spontaneous
  Country: US (occurrence: US)
  Receive Date: 20200501
  Receipt Date: 20200603
  Transmission Date: 20200714
  Serious: Yes (Hospitalization)
  Sender: FDA-Public Use
  Company Number: US-SERVIER-S20003550

PATIENT

DRUGS (4)
  1. TN UNSPECIFIED [HYDROCORTISONE BUTYRATE] [Concomitant]
     Active Substance: HYDROCORTISONE BUTYRATE
     Indication: PREMEDICATION
     Dosage: 70 MG
     Route: 042
     Dates: start: 20200422
  2. TN UNSPECIFIED [VINCRISTINE SULFATE] [Concomitant]
     Active Substance: VINCRISTINE SULFATE
     Indication: ACUTE LYMPHOCYTIC LEUKAEMIA
     Dosage: 2 MG, ONE DOSE
     Route: 042
     Dates: start: 20200422
  3. ONCASPAR [Suspect]
     Active Substance: PEGASPARGASE
     Dosage: 4475 IU
     Route: 042
     Dates: start: 20200422, end: 20200422
  4. ONCASPAR [Suspect]
     Active Substance: PEGASPARGASE
     Indication: ACUTE LYMPHOCYTIC LEUKAEMIA
     Dosage: UNK IU
     Route: 042

REACTIONS (1)
  - Anaphylactic reaction [Recovered/Resolved]

NARRATIVE: CASE EVENT DATE: 20200422
